FAERS Safety Report 6988297-5 (Version None)
Quarter: 2010Q3

REPORT INFORMATION
  Report Type: 
  Country: None (occurrence: None)
  Receive Date: 20100914
  Receipt Date: 20100902
  Transmission Date: 20110219
  Serious: Yes (Other)
  Sender: FDA-Public Use
  Company Number: US-003606

PATIENT
  Sex: Female

DRUGS (1)
  1. TRANEXAMIC ACID [Suspect]
     Dosage: 1300 MG TID ORAL
     Route: 048
     Dates: start: 20100801, end: 20100810

REACTIONS (1)
  - DEEP VEIN THROMBOSIS [None]
